FAERS Safety Report 25793836 (Version 2)
Quarter: 2025Q4

REPORT INFORMATION
  Report Type: Report from Study
  Country: US (occurrence: US)
  Receive Date: 20250912
  Receipt Date: 20251015
  Transmission Date: 20260117
  Serious: Yes (Other)
  Sender: ABBVIE
  Company Number: US-ABBVIE-6451267

PATIENT
  Age: 56 Year
  Sex: Male

DRUGS (1)
  1. SKYRIZI [Suspect]
     Active Substance: RISANKIZUMAB-RZAA
     Indication: Crohn^s disease
     Dosage: STOP DATE : 2025
     Route: 058
     Dates: start: 20240910

REACTIONS (8)
  - Sepsis [Unknown]
  - Cerebrovascular accident [Unknown]
  - Cognitive disorder [Not Recovered/Not Resolved]
  - Abdominal pain upper [Unknown]
  - Traumatic heart injury [Recovering/Resolving]
  - Memory impairment [Not Recovered/Not Resolved]
  - Diarrhoea [Unknown]
  - Dementia [Unknown]

NARRATIVE: CASE EVENT DATE: 20250101
